FAERS Safety Report 6493804-5 (Version None)
Quarter: 2009Q4

REPORT INFORMATION
  Report Type: 
  Country: None (occurrence: None)
  Receive Date: 20091214
  Receipt Date: 20081105
  Transmission Date: 20100525
  Serious: Yes (Hospitalization)
  Sender: FDA-Public Use
  Company Number: US-BRISTOL-MYERS SQUIBB COMPANY-14395990

PATIENT
  Age: 40 Year
  Sex: Male

DRUGS (2)
  1. ABILIFY [Suspect]
     Dosage: INCREASED TO 20MG
  2. KLONOPIN [Suspect]

REACTIONS (2)
  - DRUG INEFFECTIVE [None]
  - SYNCOPE [None]
